FAERS Safety Report 5414634-9 (Version None)
Quarter: 2007Q3

REPORT INFORMATION
  Report Type: 
  Country: None (occurrence: None)
  Receive Date: 20070813
  Receipt Date: 20070808
  Transmission Date: 20080115
  Serious: Yes (Other)
  Sender: FDA-Public Use
  Company Number: 070101

PATIENT
  Age: 55 Year
  Sex: Female
  Weight: 73.4827 kg

DRUGS (3)
  1. NULYTELY [Suspect]
     Indication: COLONOSCOPY
     Dosage: APPROX. 2L, 1X, PO
     Route: 048
     Dates: start: 20070530
  2. AZATIOPRINE [Concomitant]
  3. NEURONTIN [Concomitant]

REACTIONS (6)
  - CHEST INJURY [None]
  - IMPAIRED WORK ABILITY [None]
  - LUNG INFECTION [None]
  - MUSCULOSKELETAL CHEST PAIN [None]
  - PNEUMONIA [None]
  - VOMITING [None]
